FAERS Safety Report 23352116 (Version 1)
Quarter: 2023Q4

REPORT INFORMATION
  Report Type: Spontaneous
  Country: US (occurrence: US)
  Receive Date: 20231229
  Receipt Date: 20231229
  Transmission Date: 20240109
  Serious: Yes (Other)
  Sender: FDA-Public Use
  Company Number: US-BAUSCH-BL-2023-019327

PATIENT
  Age: 29 Year
  Sex: Female

DRUGS (3)
  1. BUPROPION [Suspect]
     Active Substance: BUPROPION
     Indication: Product used for unknown indication
     Dosage: LARGE QUANTITIES
     Route: 065
  2. ALPRAZOLAM [Suspect]
     Active Substance: ALPRAZOLAM
     Indication: Product used for unknown indication
     Dosage: LARGE QUANTITIES
     Route: 065
  3. LISDEXAMFETAMINE [Suspect]
     Active Substance: LISDEXAMFETAMINE
     Indication: Product used for unknown indication
     Dosage: LARGE QUANTITIES
     Route: 065

REACTIONS (7)
  - Toxicity to various agents [Recovering/Resolving]
  - Electrocardiogram QT prolonged [Recovering/Resolving]
  - Status epilepticus [Recovering/Resolving]
  - Ventricular tachycardia [Recovering/Resolving]
  - Hypertension [Recovering/Resolving]
  - Ejection fraction decreased [Recovering/Resolving]
  - Overdose [Unknown]
